FAERS Safety Report 6449407-1 (Version None)
Quarter: 2009Q4

REPORT INFORMATION
  Report Type: 
  Country: None (occurrence: None)
  Receive Date: 20091120
  Receipt Date: 20081125
  Transmission Date: 20100525
  Serious: Yes (Hospitalization)
  Sender: FDA-Public Use
  Company Number: US-AMGEN-QUU317430

PATIENT
  Sex: Female
  Weight: 69 kg

DRUGS (4)
  1. ENBREL [Suspect]
     Indication: RHEUMATOID ARTHRITIS
     Route: 058
     Dates: start: 20080601
  2. VICODIN [Concomitant]
  3. TRAMADOL HCL [Concomitant]
  4. TRAZODONE HYDROCHLORIDE [Concomitant]
     Route: 048

REACTIONS (8)
  - ABSCESS [None]
  - CELLULITIS [None]
  - INFECTION [None]
  - JOINT STIFFNESS [None]
  - MUSCULOSKELETAL STIFFNESS [None]
  - PYREXIA [None]
  - STAPHYLOCOCCAL INFECTION [None]
  - TONSILLECTOMY [None]
